FAERS Safety Report 25424777 (Version 1)
Quarter: 2025Q2

REPORT INFORMATION
  Report Type: Spontaneous
  Country: US (occurrence: US)
  Receive Date: 20250611
  Receipt Date: 20250611
  Transmission Date: 20250716
  Serious: Yes (Hospitalization)
  Sender: BAYER HEALTHCARE LLC
  Company Number: US-BAYER-2025A074197

PATIENT
  Age: 16 Year
  Sex: Male

DRUGS (3)
  1. ALKA-SELTZER PLUS SEVERE COLD AND COUGH POWERFAST FIZZ [Suspect]
     Active Substance: ASPIRIN\CHLORPHENIRAMINE MALEATE\DEXTROMETHORPHAN HYDROBROMIDE\PHENYLEPHRINE BITARTRATE
     Indication: Hypersensitivity
     Route: 048
     Dates: start: 20250528, end: 20250528
  2. ALKA-SELTZER PLUS SEVERE COLD AND COUGH POWERFAST FIZZ [Suspect]
     Active Substance: ASPIRIN\CHLORPHENIRAMINE MALEATE\DEXTROMETHORPHAN HYDROBROMIDE\PHENYLEPHRINE BITARTRATE
     Indication: Nasopharyngitis
  3. ALKA-SELTZER PLUS SEVERE COLD AND COUGH POWERFAST FIZZ [Suspect]
     Active Substance: ASPIRIN\CHLORPHENIRAMINE MALEATE\DEXTROMETHORPHAN HYDROBROMIDE\PHENYLEPHRINE BITARTRATE
     Indication: Nasal congestion

REACTIONS (3)
  - Rash [Recovering/Resolving]
  - Urticaria [Recovering/Resolving]
  - Dyspnoea [Recovering/Resolving]

NARRATIVE: CASE EVENT DATE: 20250528
